FAERS Safety Report 5501427-7 (Version None)
Quarter: 2007Q4

REPORT INFORMATION
  Report Type: 
  Country: None (occurrence: None)
  Receive Date: 20071026
  Receipt Date: 20071026
  Transmission Date: 20080405
  Serious: No
  Sender: FDA-Public Use
  Company Number: None

PATIENT
  Age: 68 Year
  Sex: Male
  Weight: 83.3 kg

DRUGS (1)
  1. VANCOMYCIN [Suspect]
     Dosage: 1GM ON CALL X1 IV
     Route: 042
     Dates: start: 20071002

REACTIONS (4)
  - ERYTHEMA [None]
  - INFUSION RELATED REACTION [None]
  - PERIORBITAL OEDEMA [None]
  - PRURITUS GENERALISED [None]
